FAERS Safety Report 20875202 (Version 6)
Quarter: 2024Q3

REPORT INFORMATION
  Report Type: Report from Study
  Country: US (occurrence: US)
  Receive Date: 20220526
  Receipt Date: 20240710
  Transmission Date: 20241016
  Serious: Yes (Other)
  Sender: ROCHE
  Company Number: US-ROCHE-2021725

PATIENT
  Sex: Male

DRUGS (5)
  1. CELLCEPT [Suspect]
     Active Substance: MYCOPHENOLATE MOFETIL
     Indication: Uveitis
     Dosage: 2 TABS 90 DAY SUPPLY
     Route: 048
     Dates: start: 2008
  2. CELLCEPT [Suspect]
     Active Substance: MYCOPHENOLATE MOFETIL
     Indication: Iridocyclitis
     Dosage: 2 TABLETS BID
     Route: 048
  3. CELLCEPT [Suspect]
     Active Substance: MYCOPHENOLATE MOFETIL
     Dosage: 16 M BID 360
     Route: 048
  4. CELLCEPT [Suspect]
     Active Substance: MYCOPHENOLATE MOFETIL
     Dosage: TAKE 2 TABLETS (1000 MG), TWICE DAILY 360, 90 DAYS SUPPLY
     Route: 048
  5. CELLCEPT [Suspect]
     Active Substance: MYCOPHENOLATE MOFETIL
     Dosage: 2 TABLETS TWICE DAILY
     Route: 065

REACTIONS (7)
  - Off label use [Unknown]
  - Product prescribing error [Unknown]
  - Visual impairment [Unknown]
  - Blindness [Unknown]
  - Cardiac murmur [Unknown]
  - Seborrhoeic keratosis [Unknown]
  - Blood pressure increased [Unknown]
